FAERS Safety Report 22294486 (Version 1)
Quarter: 2023Q2

REPORT INFORMATION
  Report Type: Spontaneous
  Country: US (occurrence: None)
  Receive Date: 20230505
  Receipt Date: 20230505
  Transmission Date: 20230721
  Serious: Yes (Death)
  Sender: FDA-Public Use
  Company Number: None

PATIENT
  Age: 64 Year
  Sex: Female
  Weight: 92.53 kg

DRUGS (16)
  1. ETOPOSIDE [Suspect]
     Active Substance: ETOPOSIDE
     Indication: Diffuse large B-cell lymphoma
     Dosage: OTHER FREQUENCY : DAY 2 + 3;?OTHER ROUTE : OR - EVERY 21 DAYS;?
     Route: 050
     Dates: start: 202302
  2. ALPRAZOLAM [Concomitant]
     Active Substance: ALPRAZOLAM
  3. ATORVASTATIN [Concomitant]
  4. CALCIUM [Concomitant]
     Active Substance: CALCIUM
  5. CARVEDILOL [Concomitant]
     Active Substance: CARVEDILOL
  6. CEFUROXIME [Concomitant]
  7. CELEBREX [Concomitant]
     Active Substance: CELECOXIB
  8. CLOPIDOGREL [Concomitant]
  9. FAMOTIDINE [Concomitant]
  10. FUROSEMIDE [Concomitant]
     Active Substance: FUROSEMIDE
  11. Hydrocodone and Acetaminophen [Concomitant]
  12. Multivitamin [Concomitant]
  13. OMEPRAZOLE [Concomitant]
  14. POTASSIUM CHLORIDE [Concomitant]
     Active Substance: POTASSIUM CHLORIDE
  15. TRAZODONE [Concomitant]
  16. VENLAFAXINE [Concomitant]
     Active Substance: VENLAFAXINE HYDROCHLORIDE

REACTIONS (1)
  - Breast cancer [None]

NARRATIVE: CASE EVENT DATE: 20230430
